FAERS Safety Report 9447469 (Version 1)
Quarter: 2013Q3

REPORT INFORMATION
  Report Type: Spontaneous
  Country: US (occurrence: US)
  Receive Date: 20130808
  Receipt Date: 20130808
  Transmission Date: 20140515
  Serious: No
  Sender: FDA-Public Use
  Company Number: US-PFIZER INC-2013226491

PATIENT
  Age: 66 Year
  Sex: Female
  Weight: 53.52 kg

DRUGS (1)
  1. ONDANSETRON HCL [Suspect]
     Indication: NAUSEA
     Dosage: 4 MG, 2X/DAY

REACTIONS (1)
  - Malaise [Unknown]
